FAERS Safety Report 7197561-9 (Version None)
Quarter: 2010Q4

REPORT INFORMATION
  Report Type: 
  Country: None (occurrence: None)
  Receive Date: 20101227
  Receipt Date: 20101217
  Transmission Date: 20110411
  Serious: Yes (Other)
  Sender: FDA-Public Use
  Company Number: JP-ASTRAZENECA-2010SE59917

PATIENT
  Age: 84 Year
  Sex: Male

DRUGS (6)
  1. OMEPRAZON [Suspect]
     Route: 048
  2. SALOBEL [Suspect]
     Route: 048
  3. GLYCORAN [Suspect]
     Route: 048
  4. HARNAL D [Suspect]
     Route: 048
  5. THEO-DUR [Concomitant]
     Route: 048
  6. LENDORMIN [Concomitant]
     Route: 048

REACTIONS (1)
  - DRUG ERUPTION [None]
